FAERS Safety Report 4432377-5 (Version None)
Quarter: 2004Q3

REPORT INFORMATION
  Report Type: 
  Country: None (occurrence: None)
  Receive Date: 20040820
  Receipt Date: 20040813
  Transmission Date: 20050211
  Serious: Yes (Hospitalization)
  Sender: FDA-Public Use
  Company Number: 2004-08-0697

PATIENT
  Age: 59 Year
  Sex: Female
  Weight: 55 kg

DRUGS (1)
  1. INTRON A [Suspect]
     Indication: CONDYLOMA ACUMINATUM
     Dosage: 3 MIU TIW

REACTIONS (1)
  - CLOSTRIDIUM COLITIS [None]
